FAERS Safety Report 7349550-9 (Version None)
Quarter: 2011Q1

REPORT INFORMATION
  Report Type: 
  Country: None (occurrence: None)
  Receive Date: 20110314
  Receipt Date: 20110214
  Transmission Date: 20110831
  Serious: No
  Sender: FDA-Public Use
  Company Number: US-B.I. PHARMACEUTICALS,INC./RIDGEFIELD-2010-BP-14650BP

PATIENT
  Sex: Female

DRUGS (10)
  1. PRADAXA [Suspect]
     Indication: ATRIAL FIBRILLATION
     Dosage: 150 MG
     Route: 048
     Dates: start: 20101210, end: 20101211
  2. HYDROCHLOROTHIAZIDE [Concomitant]
     Dosage: 12.5 MCG
     Route: 048
     Dates: start: 20100217
  3. LIPITOR [Concomitant]
     Dosage: 10 MG
     Route: 048
     Dates: start: 20100217
  4. BENADRYL [Concomitant]
     Route: 048
     Dates: start: 20100217
  5. FLAXSEED OIL [Concomitant]
     Dosage: 1000 MG
     Route: 048
     Dates: start: 20100217
  6. TYLENOL [Concomitant]
     Route: 048
     Dates: start: 20100217
  7. KLOR-CON [Concomitant]
     Dosage: 10 MEQ
     Route: 048
     Dates: start: 20100217
  8. PRADAXA [Suspect]
     Indication: CEREBROVASCULAR ACCIDENT PROPHYLAXIS
  9. DIGOXIN [Concomitant]
     Dosage: 125 MCG
     Route: 048
     Dates: start: 20100217
  10. TYLENOL (CAPLET) [Concomitant]
     Route: 048
     Dates: start: 20100217

REACTIONS (6)
  - MYALGIA [None]
  - ABDOMINAL PAIN UPPER [None]
  - BLOOD URINE PRESENT [None]
  - DRUG INTOLERANCE [None]
  - ARTHRALGIA [None]
  - DECREASED APPETITE [None]
